FAERS Safety Report 5475179-3 (Version None)
Quarter: 2007Q4

REPORT INFORMATION
  Report Type: 
  Country: None (occurrence: None)
  Receive Date: 20071002
  Receipt Date: 20070921
  Transmission Date: 20080405
  Serious: Yes (Death, Hospitalization)
  Sender: FDA-Public Use
  Company Number: JP-PFIZER INC-2007076320

PATIENT
  Sex: Female

DRUGS (6)
  1. AMLODIPINE [Suspect]
     Indication: HYPERTENSION
     Route: 048
     Dates: start: 20060328, end: 20070702
  2. AMLODIPINE [Suspect]
     Indication: CEREBROVASCULAR ACCIDENT
  3. OLMETEC [Suspect]
     Indication: HYPERTENSION
     Route: 048
     Dates: start: 20060328, end: 20070702
  4. OLMETEC [Suspect]
     Indication: CEREBROVASCULAR ACCIDENT
  5. ASPIRIN [Suspect]
     Indication: THROMBOTIC STROKE
     Route: 048
     Dates: start: 20060328, end: 20070702
  6. ASPIRIN [Suspect]
     Indication: CEREBROVASCULAR ACCIDENT

REACTIONS (1)
  - HEPATITIS ACUTE [None]
